FAERS Safety Report 10699448 (Version 1)
Quarter: 2015Q1

REPORT INFORMATION
  Report Type: Spontaneous
  Country: US (occurrence: US)
  Receive Date: 20150109
  Receipt Date: 20150109
  Transmission Date: 20150721
  Serious: Yes (Hospitalization)
  Sender: FDA-Public Use
  Company Number: US-UCBSA-2015000301

PATIENT
  Sex: Female

DRUGS (1)
  1. KEPPRA [Suspect]
     Active Substance: LEVETIRACETAM
     Indication: SEIZURE
     Dosage: UNKNOWN DOSE
     Dates: start: 2014

REACTIONS (6)
  - Vomiting [Recovering/Resolving]
  - Muscle twitching [Recovering/Resolving]
  - Pneumonia [Recovering/Resolving]
  - Nausea [Recovered/Resolved]
  - Abnormal behaviour [Recovering/Resolving]
  - Hallucination [Recovering/Resolving]

NARRATIVE: CASE EVENT DATE: 2014
